FAERS Safety Report 20436527 (Version 1)
Quarter: 2022Q1

REPORT INFORMATION
  Report Type: Spontaneous
  Country: US (occurrence: US)
  Receive Date: 20220207
  Receipt Date: 20220207
  Transmission Date: 20220424
  Serious: Yes (Disabling, Other)
  Sender: FDA-Public Use
  Company Number: US-SA-SAC20220201000215

PATIENT

DRUGS (1)
  1. TAXOTERE [Suspect]
     Active Substance: DOCETAXEL
     Dosage: UNK

REACTIONS (8)
  - Loss of personal independence in daily activities [Unknown]
  - Dacryostenosis acquired [Unknown]
  - Dry eye [Unknown]
  - Depression [Unknown]
  - Social avoidant behaviour [Unknown]
  - Social anxiety disorder [Unknown]
  - Lacrimation increased [Unknown]
  - Skin irritation [Unknown]
